FAERS Safety Report 7153525-2 (Version None)
Quarter: 2010Q4

REPORT INFORMATION
  Report Type: 
  Country: None (occurrence: None)
  Receive Date: 20101213
  Receipt Date: 20101202
  Transmission Date: 20110411
  Serious: Yes (Other)
  Sender: FDA-Public Use
  Company Number: US-JNJFOC-20101007057

PATIENT
  Sex: Male
  Weight: 77.11 kg

DRUGS (5)
  1. INFLIXIMAB, RECOMBINANT [Suspect]
     Indication: PSORIASIS
     Route: 042
  2. HUMIRA [Suspect]
     Indication: PSORIASIS
  3. HUMIRA [Suspect]
  4. UNKNOWN MEDICATION [Concomitant]
     Indication: PSORIASIS
     Route: 061
  5. TOPICAL STEROID [Concomitant]
     Indication: PSORIASIS
     Route: 061

REACTIONS (1)
  - HERPES ZOSTER [None]
